FAERS Safety Report 15336319 (Version 3)
Quarter: 2018Q4

REPORT INFORMATION
  Report Type: Report from Study
  Country: None (occurrence: FI)
  Receive Date: 20180830
  Receipt Date: 20181130
  Transmission Date: 20190204
  Serious: Yes (Death, Life-Threatening, Hospitalization)
  Sender: FDA-Public Use
  Company Number: FI-ABBVIE-18P-055-2422041-00

PATIENT
  Age: 70 Year
  Sex: Male
  Weight: 81 kg

DRUGS (26)
  1. VENETOCLAX. [Suspect]
     Active Substance: VENETOCLAX
     Route: 048
     Dates: start: 20170926, end: 20171002
  2. BISOPROACT [Concomitant]
     Active Substance: BISOPROLOL
     Route: 048
     Dates: start: 20180705, end: 20180806
  3. VENETOCLAX. [Suspect]
     Active Substance: VENETOCLAX
     Route: 048
     Dates: start: 20171003, end: 20171009
  4. VENETOCLAX. [Suspect]
     Active Substance: VENETOCLAX
     Route: 048
     Dates: start: 20171010, end: 20171016
  5. CARDACE [Concomitant]
     Active Substance: RAMIPRIL
     Route: 048
     Dates: start: 20180705, end: 20180716
  6. ZOVIRAX [Concomitant]
     Active Substance: ACYCLOVIR
     Indication: ANTIVIRAL PROPHYLAXIS
     Route: 048
     Dates: start: 20170914, end: 20180611
  7. VENETOCLAX. [Suspect]
     Active Substance: VENETOCLAX
     Indication: CHRONIC LYMPHOCYTIC LEUKAEMIA
     Route: 048
     Dates: start: 20170919, end: 20170925
  8. COTRIM FORTE [Concomitant]
     Active Substance: SULFAMETHOXAZOLE\TRIMETHOPRIM
     Indication: PROPHYLAXIS
     Dosage: 160/800 MG
     Route: 048
     Dates: start: 20170914, end: 20180803
  9. VENETOCLAX. [Suspect]
     Active Substance: VENETOCLAX
     Route: 048
     Dates: start: 20171017, end: 20180629
  10. PARACETAMOL [Concomitant]
     Active Substance: ACETAMINOPHEN
     Indication: PYREXIA
     Route: 048
     Dates: start: 20180611, end: 20180715
  11. BISOPROACT [Concomitant]
     Active Substance: BISOPROLOL
     Route: 048
     Dates: start: 20180625, end: 20180705
  12. VENETOCLAX. [Suspect]
     Active Substance: VENETOCLAX
     Route: 048
     Dates: start: 20180711, end: 20180714
  13. ALLOPURINOL. [Concomitant]
     Active Substance: ALLOPURINOL
     Route: 048
     Dates: start: 20180806, end: 20180811
  14. COTRIM FORTE [Concomitant]
     Active Substance: SULFAMETHOXAZOLE\TRIMETHOPRIM
     Dosage: 160/800 MG
     Route: 048
     Dates: start: 20180809, end: 20180820
  15. TAVANIC [Concomitant]
     Active Substance: LEVOFLOXACIN
     Indication: ANTIPYRESIS
     Route: 048
     Dates: start: 20180706, end: 20180713
  16. ATORVASTATIN KRKA [Concomitant]
     Active Substance: ATORVASTATIN
     Indication: HYPERCHOLESTEROLAEMIA
     Route: 048
     Dates: start: 20170112, end: 20180803
  17. MAREVAN FORTE [Concomitant]
     Active Substance: WARFARIN SODIUM
     Indication: ATRIAL FLUTTER
     Route: 048
     Dates: start: 20170620, end: 20180717
  18. HYDROCORTISON [Concomitant]
     Active Substance: HYDROCORTISONE
     Indication: DRY SKIN
     Route: 061
     Dates: start: 20180529
  19. PANACOD [Concomitant]
     Active Substance: ACETAMINOPHEN\CODEINE PHOSPHATE
     Indication: PYREXIA
     Dosage: 500/30MG
     Route: 048
     Dates: start: 20180612, end: 20180715
  20. ZOVIRAX [Concomitant]
     Active Substance: ACYCLOVIR
     Route: 048
     Dates: start: 20180731, end: 20180816
  21. CARDACE [Concomitant]
     Active Substance: RAMIPRIL
     Indication: HYPERTENSION
     Route: 048
     Dates: start: 1998, end: 20180625
  22. BISOPROACT [Concomitant]
     Active Substance: BISOPROLOL
     Indication: HYPERTENSION
     Route: 048
     Dates: start: 20180614, end: 20180624
  23. ALLOPURINOL. [Concomitant]
     Active Substance: ALLOPURINOL
     Indication: PROPHYLAXIS
     Route: 048
     Dates: start: 20170914, end: 20171114
  24. ZOVIRAX [Concomitant]
     Active Substance: ACYCLOVIR
     Route: 048
     Dates: start: 20180614, end: 20180731
  25. TAVANIC [Concomitant]
     Active Substance: LEVOFLOXACIN
     Indication: PYREXIA
     Route: 048
     Dates: start: 20180614, end: 20180621
  26. RASBURICASE [Concomitant]
     Active Substance: RASBURICASE
     Indication: PROPHYLAXIS
     Dates: start: 20180806, end: 20180807

REACTIONS (2)
  - Chronic lymphocytic leukaemia transformation [Fatal]
  - Chronic lymphocytic leukaemia transformation [Recovered/Resolved]

NARRATIVE: CASE EVENT DATE: 20180714
